FAERS Safety Report 9030320 (Version 1)
Quarter: 2013Q1

REPORT INFORMATION
  Report Type: Spontaneous
  Country: GB (occurrence: GB)
  Receive Date: 20130122
  Receipt Date: 20130122
  Transmission Date: 20140127
  Serious: Yes (Hospitalization)
  Sender: FDA-Public Use
  Company Number: GB-PFIZER INC-2013010424

PATIENT
  Age: 73 Year
  Sex: Male

DRUGS (10)
  1. PIPERACILLIN/TAZOBACTAM [Suspect]
     Dosage: 4.5 G, 3X/DAY
     Route: 042
     Dates: start: 20110316, end: 20110317
  2. METRONIDAZOLE [Suspect]
     Dosage: 400 MG, 3X/DAY
     Route: 048
     Dates: start: 20110305, end: 20110306
  3. AMOXICILLIN\CLAVULANATE POTASSIUM [Suspect]
     Indication: STREPTOCOCCAL SEPSIS
     Dosage: 625 MG, 3X/DAY
     Route: 048
     Dates: start: 20110306, end: 20110313
  4. AMOXICILLIN\CLAVULANATE POTASSIUM [Suspect]
     Dosage: 625 MG, 3X/DAY (5 DOSES RECEIVED)
     Route: 048
     Dates: start: 20110317, end: 20110319
  5. AMOXICILLIN\CLAVULANATE POTASSIUM [Suspect]
     Dosage: 625 MG, 3X/DAY
     Route: 048
     Dates: start: 20110402, end: 20110405
  6. AMOXICILLIN\CLAVULANATE POTASSIUM [Suspect]
     Dosage: 1.2 G, 3X/DAY
     Route: 042
     Dates: start: 20110329, end: 20110402
  7. AMOXICILLIN\CLAVULANATE POTASSIUM [Suspect]
     Dosage: 1.2 G, 3X/DAY (1 DOSE RECEIVED)
     Route: 042
     Dates: start: 20110406, end: 20110406
  8. FLUCLOXACILLIN [Suspect]
     Indication: ULCER
     Dosage: 500 MG, 4X/DAY
     Route: 048
     Dates: start: 20110302, end: 20110306
  9. TEICOPLANIN [Suspect]
     Dosage: 800 MG, UNK STAT
     Route: 042
     Dates: start: 20110305, end: 20110305
  10. SULPIRIDE [Concomitant]
     Dosage: 400 MG, 2X/DAY
     Route: 048

REACTIONS (4)
  - Clostridium difficile infection [Recovered/Resolved]
  - Norovirus test positive [Unknown]
  - Diarrhoea [Unknown]
  - Vomiting [Unknown]
